FAERS Safety Report 23193239 (Version 1)
Quarter: 2023Q4

REPORT INFORMATION
  Report Type: Spontaneous
  Country: FR (occurrence: FR)
  Receive Date: 20231116
  Receipt Date: 20231116
  Transmission Date: 20240110
  Serious: Yes (Hospitalization)
  Sender: FDA-Public Use
  Company Number: None

PATIENT
  Age: 63 Year
  Sex: Female
  Weight: 71 kg

DRUGS (11)
  1. OXALIPLATIN [Suspect]
     Active Substance: OXALIPLATIN
     Indication: Neuroendocrine tumour
     Dosage: UNK
     Route: 042
     Dates: start: 20230727, end: 20230727
  2. OXALIPLATIN [Suspect]
     Active Substance: OXALIPLATIN
     Dosage: UNK
     Route: 042
     Dates: start: 20230811, end: 20230811
  3. EMEND [Concomitant]
     Active Substance: APREPITANT
     Dosage: 80 MILLIGRAM
     Route: 065
  4. EMEND [Concomitant]
     Active Substance: APREPITANT
     Dosage: 125 MILLIGRAM
     Route: 065
  5. PANTOPRAZOLE [Concomitant]
     Active Substance: PANTOPRAZOLE
     Dosage: 40 MILLIGRAM, QD
     Route: 065
  6. AMLODIPINE [Concomitant]
     Active Substance: AMLODIPINE BESYLATE
     Dosage: 10 MILLIGRAM, QD
     Route: 065
  7. GEMCITABINE [Concomitant]
     Active Substance: GEMCITABINE
     Indication: Neuroendocrine tumour
     Dosage: UNK UNK, QD
     Route: 042
     Dates: start: 20230727, end: 20230727
  8. GEMCITABINE [Concomitant]
     Active Substance: GEMCITABINE
     Dosage: UNK UNK, QD
     Route: 042
     Dates: start: 20230811, end: 20230811
  9. METOCLOPRAMIDE [Concomitant]
     Active Substance: METOCLOPRAMIDE
     Dosage: 10 MILLIGRAM, PRN
     Route: 065
  10. LANREOTIDE ACETATE [Concomitant]
     Active Substance: LANREOTIDE ACETATE
     Dosage: 1 DOSAGE FORM, Q2W
     Route: 065
  11. LEVOTHYROXINE SODIUM [Concomitant]
     Active Substance: LEVOTHYROXINE SODIUM
     Dosage: 1 DOSAGE FORM, Q2D
     Route: 065

REACTIONS (1)
  - Anaphylactoid reaction [Recovered/Resolved]

NARRATIVE: CASE EVENT DATE: 20230811
